FAERS Safety Report 22211735 (Version 1)
Quarter: 2023Q2

REPORT INFORMATION
  Report Type: Spontaneous
  Country: US (occurrence: US)
  Receive Date: 20230414
  Receipt Date: 20230414
  Transmission Date: 20230721
  Serious: No
  Sender: FDA-Public Use
  Company Number: US-VER-202200145

PATIENT
  Sex: Male

DRUGS (1)
  1. TRELSTAR [Suspect]
     Active Substance: TRIPTORELIN PAMOATE
     Indication: Neoplasm malignant
     Route: 065
     Dates: start: 202201, end: 202201

REACTIONS (3)
  - Fatigue [Unknown]
  - Muscle atrophy [Unknown]
  - Blood testosterone decreased [Unknown]
